FAERS Safety Report 8420231-3 (Version None)
Quarter: 2012Q2

REPORT INFORMATION
  Report Type: 
  Country: None (occurrence: None)
  Receive Date: 20120607
  Receipt Date: 20070913
  Transmission Date: 20120825
  Serious: Yes (Other)
  Sender: FDA-Public Use
  Company Number: JP-BRISTOL-MYERS SQUIBB COMPANY-14179550

PATIENT
  Age: 40 Year
  Sex: Male

DRUGS (1)
  1. ABILIFY [Suspect]
     Indication: SCHIZOPHRENIA
     Dosage: DOSE INCREASED 18MG TO 24MG/DAY ALSO TAKEN 12MG BID
     Route: 048

REACTIONS (3)
  - CHEST PAIN [None]
  - BRADYCARDIA [None]
  - LEFT VENTRICULAR HYPERTROPHY [None]
